FAERS Safety Report 5050263-7 (Version None)
Quarter: 2006Q3

REPORT INFORMATION
  Report Type: 
  Country: None (occurrence: None)
  Receive Date: 20060707
  Receipt Date: 20060627
  Transmission Date: 20061208
  Serious: Yes (Death)
  Sender: FDA-Public Use
  Company Number: 2006JP000375

PATIENT
  Age: 82 Year
  Sex: Female

DRUGS (14)
  1. TACROLIMUS CAPSULES (TACROLIMUS CAPSULES) [Suspect]
     Indication: RHEUMATOID ARTHRITIS
     Dosage: 1.5 MG, UID/QD, ORAL
     Route: 048
     Dates: start: 20051111, end: 20060215
  2. RHEUMATREX [Suspect]
     Indication: RHEUMATOID ARTHRITIS
     Dosage: 8 MG, WEEKLY, ORAL
     Route: 048
     Dates: start: 20020101, end: 20060215
  3. PREDNISOLONE [Suspect]
     Indication: RHEUMATOID ARTHRITIS
     Dosage: 5 MG, UID/QD, ORAL
     Route: 048
     Dates: end: 20060214
  4. PREDNISOLONE [Suspect]
     Indication: RHEUMATOID ARTHRITIS
     Dosage: 5 MG, UID/QD, ORAL
     Route: 048
     Dates: start: 20060215
  5. MUCOSTA (REBAMIPIDE) [Concomitant]
  6. MOBIC [Concomitant]
  7. RISEDRONATE SODIUM [Concomitant]
  8. HEAVY KAMA G (MAGNESIUM OXIDE) [Concomitant]
  9. CALBLOCK [Concomitant]
  10. OLMETEC (OLMESARTAN MEDOXOMIL) [Concomitant]
  11. BISOPROLOL FUMARATE [Concomitant]
  12. SIGMART (NOCORANDIL) [Concomitant]
  13. ALDACTONE [Concomitant]
  14. LIVALO (PITAVASTATIN CALCIUM) [Concomitant]

REACTIONS (6)
  - ARTHRALGIA [None]
  - JOINT SWELLING [None]
  - NASOPHARYNGITIS [None]
  - OXYGEN SATURATION DECREASED [None]
  - PNEUMOCYSTIS JIROVECI PNEUMONIA [None]
  - PNEUMONIA BACTERIAL [None]
